FAERS Safety Report 6696433-3 (Version None)
Quarter: 2010Q2

REPORT INFORMATION
  Report Type: 
  Country: None (occurrence: None)
  Receive Date: 20100426
  Receipt Date: 20100331
  Transmission Date: 20101027
  Serious: No
  Sender: FDA-Public Use
  Company Number: JP-ROCHE-699008

PATIENT
  Sex: Male
  Weight: 4.1 kg

DRUGS (1)
  1. OSELTAMIVIR PHOSPHATE [Suspect]
     Indication: INFLUENZA
     Dates: start: 20091125, end: 20091129

REACTIONS (3)
  - DRUG EXPOSURE DURING PREGNANCY [None]
  - NO ADVERSE EVENT [None]
  - NORMAL NEWBORN [None]
